FAERS Safety Report 7098160-X (Version None)
Quarter: 2010Q4

REPORT INFORMATION
  Report Type: 
  Country: None (occurrence: None)
  Receive Date: 20101112
  Receipt Date: 20101101
  Transmission Date: 20110411
  Serious: Yes (Hospitalization)
  Sender: FDA-Public Use
  Company Number: JP-BRISTOL-MYERS SQUIBB COMPANY-15372865

PATIENT
  Age: 1 Day
  Sex: Male

DRUGS (2)
  1. ABILIFY [Suspect]
     Route: 064
  2. FLUVOXAMINE MALEATE [Concomitant]
     Dosage: TABS
     Route: 064

REACTIONS (5)
  - CONVULSION NEONATAL [None]
  - MOANING [None]
  - MYOCLONUS [None]
  - PALLOR [None]
  - PNEUMOMEDIASTINUM [None]
